FAERS Safety Report 9569030 (Version 1)
Quarter: 2013Q3

REPORT INFORMATION
  Report Type: Spontaneous
  Country: US (occurrence: US)
  Receive Date: 20130930
  Receipt Date: 20130930
  Transmission Date: 20140515
  Serious: No
  Sender: FDA-Public Use
  Company Number: US-AMGEN-USASP2013059731

PATIENT
  Age: 42 Year
  Sex: Female
  Weight: 58.96 kg

DRUGS (2)
  1. ENBREL [Suspect]
     Indication: PSORIASIS
     Dosage: 50 MG/ML, QWK ONE INJECTION AS DIRECTED
     Route: 058
     Dates: start: 20060101
  2. ENBREL [Suspect]
     Indication: PSORIATIC ARTHROPATHY

REACTIONS (6)
  - Rash [Unknown]
  - Drug ineffective [Unknown]
  - Injection site mass [Unknown]
  - Injection site induration [Unknown]
  - Upper respiratory tract infection [Unknown]
  - Injection site rash [Unknown]
